FAERS Safety Report 8413595-8 (Version None)
Quarter: 2012Q2

REPORT INFORMATION
  Report Type: 
  Country: None (occurrence: None)
  Receive Date: 20120605
  Receipt Date: 20120522
  Transmission Date: 20120825
  Serious: Yes (Death, Other)
  Sender: FDA-Public Use
  Company Number: FR-CELGENEUS-056-20785-12052660

PATIENT

DRUGS (6)
  1. DEXAMETHASONE [Concomitant]
     Indication: MULTIPLE MYELOMA
     Dosage: 40 MILLIGRAM
     Route: 048
  2. BORTEZOMIB [Concomitant]
     Indication: MULTIPLE MYELOMA
     Dosage: 1.3 MILLIGRAM/SQ. METER
     Route: 041
  3. ENOXAPARIN [Concomitant]
     Indication: THROMBOSIS PROPHYLAXIS
     Dosage: 40 MILLIGRAM
     Route: 058
  4. WARFARIN SODIUM [Concomitant]
     Indication: THROMBOSIS PROPHYLAXIS
     Route: 065
  5. THALIDOMIDE [Suspect]
     Indication: MULTIPLE MYELOMA
     Dosage: 200 MILLIGRAM
     Route: 048
  6. BORTEZOMIB [Concomitant]
     Dosage: 1.3 MILLIGRAM/SQ. METER
     Route: 041

REACTIONS (17)
  - NEOPLASM MALIGNANT [None]
  - FATIGUE [None]
  - CARDIAC DISORDER [None]
  - PERIPHERAL SENSORY NEUROPATHY [None]
  - ANAEMIA [None]
  - INFECTION [None]
  - FEBRILE NEUTROPENIA [None]
  - SEPSIS [None]
  - DEEP VEIN THROMBOSIS [None]
  - PULMONARY EMBOLISM [None]
  - HERPES ZOSTER [None]
  - NEUTROPENIA [None]
  - BONE MARROW FAILURE [None]
  - GASTROINTESTINAL DISORDER [None]
  - MULTIPLE MYELOMA [None]
  - CONSTIPATION [None]
  - THROMBOCYTOPENIA [None]
